FAERS Safety Report 5794102-5 (Version None)
Quarter: 2008Q2

REPORT INFORMATION
  Report Type: 
  Country: None (occurrence: None)
  Receive Date: 20080627
  Receipt Date: 20080617
  Transmission Date: 20081010
  Serious: Yes (Disabling, Other)
  Sender: FDA-Public Use
  Company Number: GB-PFIZER INC-2008048868

PATIENT
  Age: 44 Year
  Sex: Female
  Weight: 60.3 kg

DRUGS (2)
  1. CHANTIX [Suspect]
     Indication: SMOKING CESSATION THERAPY
     Route: 048
  2. ACETAMINOPHEN W/ CODEINE [Concomitant]
     Indication: PAIN
     Route: 048

REACTIONS (6)
  - AGITATION [None]
  - DEPRESSION [None]
  - NEGATIVE THOUGHTS [None]
  - NIGHTMARE [None]
  - SUICIDAL IDEATION [None]
  - TEARFULNESS [None]
